FAERS Safety Report 9764675 (Version 2)
Quarter: 2014Q3

REPORT INFORMATION
  Report Type: Spontaneous
  Country: US (occurrence: US)
  Receive Date: 20131217
  Receipt Date: 20140812
  Transmission Date: 20150326
  Serious: Yes (Other)
  Sender: FDA-Public Use
  Company Number: US-JNJCP-30000191038

PATIENT
  Sex: Female
  Weight: 82 kg

DRUGS (4)
  1. NEUTROGENA HEALTHY SKIN EYE CREAM [Suspect]
     Active Substance: COSMETICS
     Indication: SKIN WRINKLING
     Dosage: PEARL SIZE AMOUNT, EVERY NIGHT AND IN THE MORNING
     Route: 061
  2. NEUTROGENA DEEP CLEAN INVIGORATING DAILY CLEANSER [Suspect]
     Active Substance: COSMETICS
     Indication: REMOVAL OF INERT MATTER FROM SKIN OR SUBCUTANEOUS TISSUE
     Dosage: THREE PUMP SIZE AMOUNT, IN THE MORNING AND AT NIGHT
     Route: 061
     Dates: start: 20100401
  3. NEUTROGENA AGE SHIELD FACE SPF 110 [Suspect]
     Active Substance: AVOBENZONE\HOMOSALATE\OCTISALATE\OCTOCRYLENE\OXYBENZONE
     Indication: PROPHYLAXIS
     Dosage: SIZE OF A COIN, ONE TIME PER DAY IN THE MORNING
     Route: 061
  4. NEUTROGENA AGE SHIELD FACE SPF 90 [Suspect]
     Active Substance: AVOBENZONE\HOMOSALATE\OCTISALATE\OCTOCRYLENE
     Indication: PROPHYLAXIS
     Dosage: SIZE OF A NICKLE AMOUNT, ONE TIME PER DAY
     Route: 061

REACTIONS (2)
  - Basal cell carcinoma [Not Recovered/Not Resolved]
  - Expired product administered [Unknown]
